FAERS Safety Report 9049500 (Version 1)
Quarter: 2013Q1

REPORT INFORMATION
  Report Type: Spontaneous
  Country: IT (occurrence: IT)
  Receive Date: 20130205
  Receipt Date: 20130205
  Transmission Date: 20140127
  Serious: Yes (Hospitalization)
  Sender: FDA-Public Use
  Company Number: PHHY2013IT009264

PATIENT
  Sex: Female

DRUGS (3)
  1. NEBIVOLOL [Suspect]
  2. CIPROFLOXACIN [Suspect]
  3. VALPROIC ACID [Suspect]

REACTIONS (3)
  - Disorientation [Recovered/Resolved]
  - Sopor [Recovered/Resolved]
  - Hypotension [Recovered/Resolved]
